FAERS Safety Report 5284365-7 (Version None)
Quarter: 2007Q1

REPORT INFORMATION
  Report Type: 
  Country: None (occurrence: None)
  Receive Date: 20070327
  Receipt Date: 20070313
  Transmission Date: 20070707
  Serious: Yes (Other)
  Sender: FDA-Public Use
  Company Number: S07-CAN-01273-01

PATIENT
  Age: 76 Year
  Sex: Female

DRUGS (5)
  1. ESCITALOPRAM [Suspect]
     Indication: DRUG USE FOR UNKNOWN INDICATION
     Dosage: 12.5 MG QD; PO
     Route: 048
  2. ATACAND [Concomitant]
  3. LORAZEPAM [Concomitant]
  4. SIMVASTATIN [Concomitant]
  5. SOTALOL HYDROCHLORIDE [Concomitant]

REACTIONS (10)
  - BLOOD OSMOLARITY DECREASED [None]
  - CONFUSIONAL STATE [None]
  - DECREASED APPETITE [None]
  - EPISTAXIS [None]
  - FACIAL PAIN [None]
  - FALL [None]
  - GAIT DISTURBANCE [None]
  - HYPONATRAEMIA [None]
  - SOMNOLENCE [None]
  - URINE FLOW DECREASED [None]
